FAERS Safety Report 24568951 (Version 4)
Quarter: 2025Q2

REPORT INFORMATION
  Report Type: Report from Study
  Country: US (occurrence: US)
  Receive Date: 20241031
  Receipt Date: 20250626
  Transmission Date: 20250717
  Serious: Yes (Other)
  Sender: UCB
  Company Number: US-UCBSA-2024055463

PATIENT
  Age: 7 Year
  Sex: Male
  Weight: 22.6 kg

DRUGS (3)
  1. FINTEPLA [Suspect]
     Active Substance: FENFLURAMINE
     Indication: Lennox-Gastaut syndrome
     Dosage: 0.66 MILLIGRAM/KILOGRAM, ONCE DAILY (QD) (TOTAL - 14.5MG))
     Dates: start: 20221213
  2. FINTEPLA [Suspect]
     Active Substance: FENFLURAMINE
     Dosage: 3.3 MILLILITER, 2X/DAY (BID)
     Dates: end: 20250325
  3. FINTEPLA [Suspect]
     Active Substance: FENFLURAMINE
     Dosage: 3.3 MILLILITER, 2X/DAY (BID)
     Dates: end: 20250325

REACTIONS (6)
  - Pulmonary valve incompetence [Unknown]
  - Tricuspid valve incompetence [Unknown]
  - Right ventricular dilatation [Unknown]
  - Vomiting [Not Recovered/Not Resolved]
  - Intentional dose omission [Unknown]
  - Product dose omission issue [Unknown]

NARRATIVE: CASE EVENT DATE: 20240822
